FAERS Safety Report 5120157-7 (Version None)
Quarter: 2006Q3

REPORT INFORMATION
  Report Type: 
  Country: None (occurrence: None)
  Receive Date: 20060928
  Receipt Date: 20060908
  Transmission Date: 20061208
  Serious: Yes (Disabling)
  Sender: FDA-Public Use
  Company Number: 2006SP001064

PATIENT
  Age: 47 Year
  Sex: Male

DRUGS (1)
  1. INTRON A [Suspect]
     Indication: SPLENOMEGALY
     Dosage: 15 MIU; QW
     Dates: start: 20031013

REACTIONS (4)
  - DENTAL DISCOMFORT [None]
  - PERIODONTAL DESTRUCTION [None]
  - TOOTHACHE [None]
  - WEIGHT DECREASED [None]
